FAERS Safety Report 7381682-1 (Version None)
Quarter: 2011Q1

REPORT INFORMATION
  Report Type: 
  Country: None (occurrence: None)
  Receive Date: 20110329
  Receipt Date: 20110316
  Transmission Date: 20110831
  Serious: Yes (Hospitalization)
  Sender: FDA-Public Use
  Company Number: US-JNJFOC-20101108430

PATIENT
  Sex: Female
  Weight: 43.5 kg

DRUGS (4)
  1. BUDESONIDE [Concomitant]
  2. CIMZIA [Concomitant]
  3. PREDNISONE [Concomitant]
  4. REMICADE [Suspect]
     Indication: CROHN'S DISEASE
     Route: 042

REACTIONS (3)
  - DRUG INEFFECTIVE [None]
  - CROHN'S DISEASE [None]
  - ILEAL STENOSIS [None]
